FAERS Safety Report 5651523-9 (Version None)
Quarter: 2008Q1

REPORT INFORMATION
  Report Type: 
  Country: None (occurrence: None)
  Receive Date: 20080305
  Receipt Date: 20080225
  Transmission Date: 20080703
  Serious: Yes (Other)
  Sender: FDA-Public Use
  Company Number: TR-ELI_LILLY_AND_COMPANY-TR200802005838

PATIENT
  Age: 79 Year
  Sex: Female
  Weight: 78 kg

DRUGS (5)
  1. HUMULIN R [Suspect]
     Dosage: UNK, UNK
     Route: 058
     Dates: start: 19980101, end: 20080101
  2. HUMULIN N [Suspect]
     Dosage: UNK, UNK
     Route: 058
     Dates: start: 19980101, end: 20080101
  3. HUMULIN 70/30 [Suspect]
     Dosage: 8 IU, EACH MORNING
     Route: 058
     Dates: start: 20080101
  4. HUMULIN 70/30 [Suspect]
     Dosage: 12 IU, EACH EVENING
     Route: 058
     Dates: start: 20080101
  5. DIAMICRON [Concomitant]
     Dosage: UNK, DAILY (1/D)
     Route: 048
     Dates: start: 19930101

REACTIONS (2)
  - CARDIAC FAILURE CONGESTIVE [None]
  - RENAL FAILURE [None]
